FAERS Safety Report 16866917 (Version 1)
Quarter: 2019Q4

REPORT INFORMATION
  Report Type: Spontaneous
  Country: US (occurrence: US)
  Receive Date: 20190928
  Receipt Date: 20190928
  Transmission Date: 20200122
  Serious: Yes (Disabling)
  Sender: FDA-Public Use
  Company Number: None

PATIENT
  Age: 46 Year
  Sex: Female
  Weight: 87.75 kg

DRUGS (1)
  1. EMGALITY [Suspect]
     Active Substance: GALCANEZUMAB-GNLM
     Indication: MIGRAINE
     Dosage: ?          QUANTITY:2 INJECTION(S);OTHER FREQUENCY:ONCE A MONTH;?
     Route: 058
     Dates: start: 20190815, end: 20190913

REACTIONS (20)
  - Fatigue [None]
  - Therapeutic product effect decreased [None]
  - Decreased appetite [None]
  - Nausea [None]
  - Constipation [None]
  - Musculoskeletal pain [None]
  - Dizziness postural [None]
  - Insomnia [None]
  - Alopecia [None]
  - Temperature regulation disorder [None]
  - Migraine [None]
  - Ocular discomfort [None]
  - Dizziness [None]
  - Visual impairment [None]
  - Vision blurred [None]
  - Back pain [None]
  - Flushing [None]
  - Hyperhidrosis [None]
  - Feeling abnormal [None]
  - Myalgia [None]

NARRATIVE: CASE EVENT DATE: 20190821
